FAERS Safety Report 10893526 (Version 2)
Quarter: 2015Q1

REPORT INFORMATION
  Report Type: Report from Study
  Country: NL (occurrence: NL)
  Receive Date: 20150306
  Receipt Date: 20150319
  Transmission Date: 20150721
  Serious: Yes (Other)
  Sender: FDA-Public Use
  Company Number: NL-ABBVIE-15P-114-1350086-00

PATIENT
  Age: 36 Year
  Sex: Female

DRUGS (1)
  1. DUODOPA [Suspect]
     Active Substance: CARBIDOPA\LEVODOPA
     Indication: PARKINSON^S DISEASE
     Dosage: 20/5MG/ML. INTESTINAL
     Route: 050
     Dates: start: 20140624, end: 20150221

REACTIONS (17)
  - Back pain [Not Recovered/Not Resolved]
  - Abdominal pain [Not Recovered/Not Resolved]
  - Abdominal infection [Not Recovered/Not Resolved]
  - Hypovitaminosis [Unknown]
  - Suicide attempt [Unknown]
  - Skin disorder [Recovering/Resolving]
  - Mobility decreased [Unknown]
  - Depression [Not Recovered/Not Resolved]
  - Gastric disorder [Recovered/Resolved]
  - Fatigue [Unknown]
  - Intentional overdose [Unknown]
  - Rash pustular [Unknown]
  - Social problem [Unknown]
  - Gastrointestinal disorder [Not Recovered/Not Resolved]
  - Adverse drug reaction [Unknown]
  - Feeling abnormal [Unknown]
  - Influenza [Unknown]

NARRATIVE: CASE EVENT DATE: 201406
